FAERS Safety Report 8281839-1 (Version None)
Quarter: 2012Q2

REPORT INFORMATION
  Report Type: 
  Country: None (occurrence: None)
  Receive Date: 20120413
  Receipt Date: 20120405
  Transmission Date: 20120825
  Serious: Yes (Hospitalization, Other)
  Sender: FDA-Public Use
  Company Number: PHHY2012JP007203

PATIENT
  Sex: Male
  Weight: 47 kg

DRUGS (14)
  1. ALISKIREN [Suspect]
     Indication: HYPERTENSION
     Dosage: 150 MG, QD
     Route: 048
     Dates: start: 20100226, end: 20100325
  2. EPLERENONE [Concomitant]
     Indication: HYPERTENSION
     Dosage: 100 MG, UNK
     Route: 048
  3. EPINASTINE HYDROCHLORIDE [Concomitant]
     Dosage: 20 MG, UNK
     Route: 048
  4. TRICHLORMETHIAZIDE [Concomitant]
     Dosage: 0.5 MG, UNK
     Route: 048
  5. AMLODIPINE [Concomitant]
     Indication: HYPERTENSION
     Dosage: 5 MG, UNK
     Route: 048
     Dates: start: 20100621, end: 20100916
  6. EPLERENONE [Concomitant]
     Dosage: 75 MG, UNK
     Route: 048
     Dates: start: 20100126
  7. PROTECADIN [Concomitant]
     Dosage: 10 MG, UNK
     Route: 048
  8. MUCODYNE [Concomitant]
     Dosage: 1500 MG, UNK
     Route: 048
  9. FERROUS CITRATE [Concomitant]
     Dosage: 100 MG, UNK
     Route: 048
     Dates: start: 20100916
  10. ALISKIREN [Suspect]
     Dosage: 300 MG, UNK
     Route: 048
     Dates: start: 20100326
  11. OLMESARTAN MEDOXOMIL [Concomitant]
     Indication: HYPERTENSION
     Dosage: 20 MG, UNK
     Route: 048
     Dates: start: 20100126
  12. TRICHLORMETHIAZIDE [Concomitant]
     Dosage: 1 MG, UNK
     Route: 048
     Dates: start: 20100126
  13. AMLODIPINE [Concomitant]
     Dosage: 10 MG, UNK
     Route: 048
  14. TRICHLORMETHIAZIDE [Concomitant]
     Indication: HYPERTENSION
     Dosage: 1 MG, UNK
     Route: 048
     Dates: start: 20100126, end: 20100826

REACTIONS (5)
  - BLOOD PRESSURE DIASTOLIC DECREASED [None]
  - BLADDER CANCER [None]
  - HAEMATURIA [None]
  - BLOOD PRESSURE DIASTOLIC INCREASED [None]
  - TRANSITIONAL CELL CARCINOMA [None]
